FAERS Safety Report 18070207 (Version 1)
Quarter: 2020Q3

REPORT INFORMATION
  Report Type: Spontaneous
  Country: CA (occurrence: CA)
  Receive Date: 20200727
  Receipt Date: 20200727
  Transmission Date: 20201103
  Serious: Yes (Hospitalization, Other)
  Sender: FDA-Public Use
  Company Number: CA-ALEMBIC PHARMACUETICALS LIMITED-2020SCAL000317

PATIENT

DRUGS (3)
  1. PREGABALIN. [Suspect]
     Active Substance: PREGABALIN
     Indication: ARTHRALGIA
     Dosage: UNK
     Route: 065
  2. NAPROXEN. [Suspect]
     Active Substance: NAPROXEN
     Indication: ARTHRALGIA
     Dosage: UNK
  3. BRINZOLAMIDE;TIMOLOL [Suspect]
     Active Substance: BRINZOLAMIDE\TIMOLOL
     Indication: GLAUCOMA
     Dosage: UNK

REACTIONS (4)
  - Skin erosion [Recovered/Resolved]
  - Rash maculo-papular [Recovered/Resolved]
  - Rash erythematous [Recovered/Resolved]
  - Toxic epidermal necrolysis [Recovered/Resolved]
